FAERS Safety Report 13099984 (Version 1)
Quarter: 2017Q1

REPORT INFORMATION
  Report Type: Spontaneous
  Country: US (occurrence: US)
  Receive Date: 20170110
  Receipt Date: 20170110
  Transmission Date: 20170428
  Serious: Yes (Hospitalization, Other)
  Sender: FDA-Public Use
  Company Number: US-RANBAXY-2014US-83049

PATIENT
  Age: 50 Year
  Sex: Female

DRUGS (6)
  1. OLMESARTAN [Concomitant]
     Active Substance: OLMESARTAN
     Indication: HYPERTENSION
     Dosage: UNK
     Route: 065
  2. SUMATRIPTAN. [Suspect]
     Active Substance: SUMATRIPTAN
     Indication: MIGRAINE
     Dosage: 25 MG, Q 2-4 H AS NEEDED, USUALLY ONCE EVERY OTHER MONTH
     Route: 048
  3. CYCLOBENZAPRINE [Concomitant]
     Active Substance: CYCLOBENZAPRINE
     Indication: MUSCLE SPASMS
     Dosage: UNK
     Route: 065
  4. NAPROXEN. [Concomitant]
     Active Substance: NAPROXEN
     Indication: ARTHRITIS
     Dosage: UNK
     Route: 065
  5. SUMATRIPTAN. [Suspect]
     Active Substance: SUMATRIPTAN
     Dosage: 6 MG, SINGLE
     Route: 058
  6. SUMATRIPTAN. [Suspect]
     Active Substance: SUMATRIPTAN
     Indication: MIGRAINE
     Dosage: UNK
     Route: 058

REACTIONS (1)
  - Colitis ischaemic [Recovered/Resolved]
